FAERS Safety Report 6986402-8 (Version None)
Quarter: 2010Q3

REPORT INFORMATION
  Report Type: 
  Country: None (occurrence: None)
  Receive Date: 20100915
  Receipt Date: 20090630
  Transmission Date: 20110219
  Serious: No
  Sender: FDA-Public Use
  Company Number: US-WYE-H09979209

PATIENT
  Sex: Female
  Weight: 74.91 kg

DRUGS (2)
  1. PRISTIQ [Suspect]
     Indication: DEPRESSION
     Dosage: 50 MG (FREQUENCY UNKNOWN)
     Route: 048
     Dates: start: 20090629
  2. PRISTIQ [Suspect]
     Indication: ANXIETY

REACTIONS (4)
  - FEELING ABNORMAL [None]
  - MIDDLE INSOMNIA [None]
  - PALPITATIONS [None]
  - TACHYPHRENIA [None]
